FAERS Safety Report 7077273-2 (Version None)
Quarter: 2010Q4

REPORT INFORMATION
  Report Type: 
  Country: None (occurrence: None)
  Receive Date: 20101101
  Receipt Date: 20101022
  Transmission Date: 20110411
  Serious: Yes (Hospitalization, Other)
  Sender: FDA-Public Use
  Company Number: US-ASTRAZENECA-2010SE27376

PATIENT
  Age: 54 Year
  Sex: Male
  Weight: 109.8 kg

DRUGS (1)
  1. SEROQUEL [Suspect]
     Indication: POST-TRAUMATIC STRESS DISORDER
     Route: 048
     Dates: start: 20040101, end: 20050101

REACTIONS (11)
  - ACTIVATED PARTIAL THROMBOPLASTIN TIME PROLONGED [None]
  - AGITATION [None]
  - AMNESIA [None]
  - DIABETIC COMA [None]
  - DYSPNOEA [None]
  - HYPONATRAEMIA [None]
  - LEUKOCYTOSIS [None]
  - MENTAL STATUS CHANGES [None]
  - PSYCHOMOTOR SKILLS IMPAIRED [None]
  - RENAL FAILURE [None]
  - SPEECH DISORDER [None]
